FAERS Safety Report 11192784 (Version 1)
Quarter: 2015Q2

REPORT INFORMATION
  Report Type: Spontaneous
  Country: US (occurrence: None)
  Receive Date: 20150612
  Receipt Date: 20150612
  Transmission Date: 20150821
  Serious: Yes (Hospitalization, Other)
  Sender: FDA-Public Use
  Company Number: 2015COR00112

PATIENT
  Age: 10 Month
  Sex: Female

DRUGS (1)
  1. OXYCODONE (OXYCODONE) UNKNOWN, UNKNOWN [Suspect]
     Active Substance: OXYCODONE

REACTIONS (14)
  - Metabolic acidosis [None]
  - Accidental overdose [None]
  - Leukocytosis [None]
  - Hypertonia [None]
  - Respiratory acidosis [None]
  - Transaminases increased [None]
  - Accidental exposure to product by child [None]
  - Unresponsive to stimuli [None]
  - Brain injury [None]
  - Hypoxia [None]
  - Eye movement disorder [None]
  - Encephalitis [None]
  - Brain scan abnormal [None]
  - Retinal haemorrhage [None]
